FAERS Safety Report 15844278 (Version 1)
Quarter: 2019Q1

REPORT INFORMATION
  Report Type: Spontaneous
  Country: DE (occurrence: DE)
  Receive Date: 20190118
  Receipt Date: 20190118
  Transmission Date: 20190417
  Serious: Yes (Disabling)
  Sender: FDA-Public Use
  Company Number: DE-BAUSCH-BL-2018-034582

PATIENT
  Sex: Male
  Weight: 76 kg

DRUGS (2)
  1. ZYCLARA [Suspect]
     Active Substance: IMIQUIMOD
     Route: 003
     Dates: start: 20181125, end: 20181129
  2. ZYCLARA [Suspect]
     Active Substance: IMIQUIMOD
     Indication: ACTINIC KERATOSIS
     Route: 003
     Dates: start: 20181022, end: 20181104

REACTIONS (7)
  - Corneal opacity [Not Recovered/Not Resolved]
  - Skin tightness [Recovering/Resolving]
  - Dry skin [Not Recovered/Not Resolved]
  - Chills [Recovering/Resolving]
  - Lip swelling [Recovering/Resolving]
  - Eye swelling [Recovering/Resolving]
  - Swelling face [Not Recovered/Not Resolved]

NARRATIVE: CASE EVENT DATE: 20181220
